FAERS Safety Report 5492891-0 (Version None)
Quarter: 2007Q4

REPORT INFORMATION
  Report Type: 
  Country: None (occurrence: None)
  Receive Date: 20071023
  Receipt Date: 20071012
  Transmission Date: 20080405
  Serious: Yes (Other)
  Sender: FDA-Public Use
  Company Number: US-KINGPHARMUSA00001-K200701331

PATIENT

DRUGS (10)
  1. SEPTRA [Suspect]
  2. ZIDOVUDINE [Suspect]
     Indication: PROPHYLAXIS AGAINST HIV INFECTION
     Dosage: 10 MG/ML, UNK
     Route: 048
  3. LAMIVUDINE [Suspect]
     Indication: PROPHYLAXIS AGAINST HIV INFECTION
     Dosage: 10 MG/ML, UNK
     Route: 048
  4. NEVIRAPINE [Suspect]
     Indication: PROPHYLAXIS AGAINST HIV INFECTION
     Dosage: 50 MG/ML, UNK
     Route: 048
  5. COMBIVIR [Suspect]
     Indication: PROPHYLAXIS AGAINST HIV INFECTION
     Dosage: 150/300 MG
     Route: 063
  6. LAMIVUDINE [Suspect]
     Dosage: 150 MG, UNK
     Route: 063
  7. STAVUDINE [Suspect]
     Indication: PROPHYLAXIS AGAINST HIV INFECTION
     Route: 063
  8. KALETRA [Suspect]
     Indication: PROPHYLAXIS AGAINST HIV INFECTION
     Dosage: 50 MG/200 MG
     Route: 063
  9. NEVIRAPINE [Suspect]
     Dosage: 200 MG, UNK
     Route: 063
  10. NELFINAVIR MESILATE [Suspect]
     Indication: PROPHYLAXIS AGAINST HIV INFECTION
     Dosage: UNK, UNK
     Route: 063

REACTIONS (1)
  - ANAEMIA [None]
